FAERS Safety Report 19234760 (Version 3)
Quarter: 2022Q1

REPORT INFORMATION
  Report Type: Spontaneous
  Country: DE (occurrence: DE)
  Receive Date: 20210509
  Receipt Date: 20220128
  Transmission Date: 20220423
  Serious: Yes (Death, Other)
  Sender: FDA-Public Use
  Company Number: DE-PPDUS-2021ST000019

PATIENT
  Age: 68 Year
  Sex: Male

DRUGS (3)
  1. ELZONRIS [Suspect]
     Active Substance: TAGRAXOFUSP-ERZS
     Indication: Blastic plasmacytoid dendritic cell neoplasia
     Route: 042
     Dates: start: 20201123, end: 20201218
  2. 5-ACACITIDNE [Concomitant]
     Indication: Blastic plasmacytoid dendritic cell neoplasia
  3. VENETOCLAX [Concomitant]
     Active Substance: VENETOCLAX
     Indication: Blastic plasmacytoid dendritic cell neoplasia

REACTIONS (6)
  - Death [Fatal]
  - Septic shock [Fatal]
  - Disease progression [Not Recovered/Not Resolved]
  - Capillary leak syndrome [Recovered/Resolved]
  - Hepatotoxicity [Recovered/Resolved]
  - Therapy cessation [Not Recovered/Not Resolved]
